FAERS Safety Report 13110098 (Version 1)
Quarter: 2017Q1

REPORT INFORMATION
  Report Type: Spontaneous
  Country: US (occurrence: US)
  Receive Date: 20170112
  Receipt Date: 20170112
  Transmission Date: 20170428
  Serious: No
  Sender: FDA-Public Use
  Company Number: US-ROCHE-1270106

PATIENT
  Age: 64 Year
  Sex: Female

DRUGS (2)
  1. ACTIVASE [Suspect]
     Active Substance: ALTEPLASE
     Route: 042
     Dates: start: 20130830, end: 20130830
  2. ACTIVASE [Suspect]
     Active Substance: ALTEPLASE
     Indication: CEREBROVASCULAR ACCIDENT
     Route: 040
     Dates: start: 20130830, end: 20130830

REACTIONS (2)
  - Swollen tongue [Recovered/Resolved]
  - Angioedema [Unknown]

NARRATIVE: CASE EVENT DATE: 20130830
